FAERS Safety Report 7628564-5 (Version None)
Quarter: 2011Q3

REPORT INFORMATION
  Report Type: 
  Country: None (occurrence: None)
  Receive Date: 20110720
  Receipt Date: 20110720
  Transmission Date: 20111222
  Serious: Yes (Other)
  Sender: FDA-Public Use
  Company Number: None

PATIENT
  Sex: Female

DRUGS (3)
  1. LAMICTAL [Suspect]
     Indication: SEBACEOUS NAEVUS
     Dosage: TWO BID  PO
     Route: 048
     Dates: start: 20030522
  2. DEPAKOTE ER [Suspect]
     Indication: CHEST PAIN
     Dosage: TWO TID PO
     Route: 048
  3. DEPAKOTE ER [Suspect]
     Indication: CONVULSION
     Dosage: TWO TID PO
     Route: 048

REACTIONS (2)
  - CONVULSION [None]
  - PRODUCT SUBSTITUTION ISSUE [None]
